FAERS Safety Report 15169897 (Version 2)
Quarter: 2018Q4

REPORT INFORMATION
  Report Type: Report from Study
  Country: ZA (occurrence: ZA)
  Receive Date: 20180720
  Receipt Date: 20181008
  Transmission Date: 20190204
  Serious: Yes (Life-Threatening, Hospitalization, Other)
  Sender: FDA-Public Use
  Company Number: ZA-ROCHE-2153627

PATIENT
  Age: 32 Year
  Sex: Male
  Weight: 94 kg

DRUGS (7)
  1. PROMETHAZINE [Concomitant]
     Active Substance: PROMETHAZINE\PROMETHAZINE HYDROCHLORIDE
     Indication: RASH
     Route: 042
     Dates: start: 20180705, end: 20180705
  2. METOCLOPRAMIDE. [Concomitant]
     Active Substance: METOCLOPRAMIDE
     Indication: NAUSEA
     Route: 042
     Dates: start: 20180705, end: 20180705
  3. INVANZ [Concomitant]
     Active Substance: ERTAPENEM SODIUM
     Indication: SEPSIS
     Route: 042
     Dates: start: 20180709
  4. ZELBORAF [Suspect]
     Active Substance: VEMURAFENIB
     Indication: METASTATIC MALIGNANT MELANOMA
     Dosage: 240MCG - 960MCG TWICE DAILY ORALLY
     Route: 048
     Dates: start: 20180626, end: 20180705
  5. PEMBROLIZUMAB. [Concomitant]
     Active Substance: PEMBROLIZUMAB
  6. COBIMETINIB. [Suspect]
     Active Substance: COBIMETINIB
     Indication: PRODUCT USED FOR UNKNOWN INDICATION
     Route: 048
     Dates: start: 20180723
  7. ZOFER [Concomitant]
     Active Substance: ONDANSETRON HYDROCHLORIDE
     Indication: NAUSEA
     Route: 042
     Dates: start: 20180705, end: 20180705

REACTIONS (14)
  - Sepsis [Recovering/Resolving]
  - Pyrexia [Recovering/Resolving]
  - Malignant melanoma [Unknown]
  - Hypotension [Recovering/Resolving]
  - Rash [Recovering/Resolving]
  - Neck mass [Unknown]
  - Tachycardia [Recovering/Resolving]
  - Cheilitis [Recovering/Resolving]
  - Rash generalised [Recovering/Resolving]
  - Confusional state [Recovering/Resolving]
  - Chills [Unknown]
  - Blood creatinine increased [Recovering/Resolving]
  - Inflammatory pain [Unknown]
  - Infection [Unknown]

NARRATIVE: CASE EVENT DATE: 20180705
